FAERS Safety Report 8115711-4 (Version None)
Quarter: 2012Q1

REPORT INFORMATION
  Report Type: 
  Country: None (occurrence: None)
  Receive Date: 20120206
  Receipt Date: 20120201
  Transmission Date: 20120608
  Serious: Yes (Other)
  Sender: FDA-Public Use
  Company Number: US-PFIZER INC-2012017270

PATIENT
  Sex: Female
  Weight: 61.2 kg

DRUGS (3)
  1. METFORMIN [Concomitant]
     Indication: DIABETES MELLITUS
     Dosage: UNK
     Dates: start: 20111027
  2. PREMPRO [Suspect]
     Indication: HORMONE REPLACEMENT THERAPY
     Dosage: 0.625/5 MG, DAILY
     Route: 048
     Dates: start: 20070101
  3. AMITRIPTYLINE [Concomitant]
     Indication: SLEEP DISORDER
     Dosage: 75 MG, DAILY

REACTIONS (7)
  - LUMBAR VERTEBRAL FRACTURE [None]
  - BACK INJURY [None]
  - INTERVERTEBRAL DISC PROTRUSION [None]
  - IMPAIRED WORK ABILITY [None]
  - BLOOD CHOLESTEROL INCREASED [None]
  - FALL [None]
  - WEIGHT INCREASED [None]
